FAERS Safety Report 12686861 (Version 2)
Quarter: 2016Q3

REPORT INFORMATION
  Report Type: Spontaneous
  Country: US (occurrence: US)
  Receive Date: 20160825
  Receipt Date: 20160912
  Transmission Date: 20161109
  Serious: No
  Sender: FDA-Public Use
  Company Number: US-JAZZ-2016-US-006854

PATIENT
  Sex: Female

DRUGS (27)
  1. CALCIUM +D [Concomitant]
     Active Substance: CALCIUM\VITAMIN D
  2. EPIPEN [Concomitant]
     Active Substance: EPINEPHRINE
  3. METOPROLOL SUCCINATE. [Concomitant]
     Active Substance: METOPROLOL SUCCINATE
  4. LASIX [Concomitant]
     Active Substance: FUROSEMIDE
  5. XYREM [Suspect]
     Active Substance: SODIUM OXYBATE
     Dosage: 3 G, BID
     Route: 048
     Dates: start: 201409, end: 2014
  6. DOXYCYCLINE. [Concomitant]
     Active Substance: DOXYCYCLINE
  7. ATIVAN [Concomitant]
     Active Substance: LORAZEPAM
  8. DULERA [Concomitant]
     Active Substance: FORMOTEROL FUMARATE DIHYDRATE\MOMETASONE FUROATE
  9. NITROSTAT [Concomitant]
     Active Substance: NITROGLYCERIN
  10. VITAMIN D [Concomitant]
     Active Substance: CHOLECALCIFEROL
  11. VENTOLIN [Concomitant]
     Active Substance: ALBUTEROL SULFATE
  12. FISH OIL [Concomitant]
     Active Substance: FISH OIL
  13. TAMIFLU [Concomitant]
     Active Substance: OSELTAMIVIR PHOSPHATE
  14. XYREM [Suspect]
     Active Substance: SODIUM OXYBATE
     Dosage: 3 G, BID
     Route: 048
     Dates: start: 201507
  15. CLARITIN [Concomitant]
     Active Substance: LORATADINE
  16. MINOCYCLINE HCL [Concomitant]
     Active Substance: MINOCYCLINE HYDROCHLORIDE
  17. XYREM [Suspect]
     Active Substance: SODIUM OXYBATE
     Dosage: 2.25 G, BID
     Route: 048
     Dates: start: 201409, end: 201409
  18. ALLERGY [Concomitant]
     Active Substance: UNSPECIFIED INGREDIENT
  19. MULTIVITAMINS [Concomitant]
     Active Substance: VITAMINS
  20. SINGULAIR [Concomitant]
     Active Substance: MONTELUKAST SODIUM
  21. VYVANSE [Concomitant]
     Active Substance: LISDEXAMFETAMINE DIMESYLATE
  22. POTASSIUM [Concomitant]
     Active Substance: POTASSIUM
  23. XYREM [Suspect]
     Active Substance: SODIUM OXYBATE
     Indication: NARCOLEPSY
     Dosage: 2.25 G, BID
     Route: 048
     Dates: start: 200305, end: 200308
  24. XYREM [Suspect]
     Active Substance: SODIUM OXYBATE
     Indication: CATAPLEXY
     Dosage: 3 G, BID
     Route: 048
     Dates: start: 200308, end: 2004
  25. ADVIL [Concomitant]
     Active Substance: IBUPROFEN
  26. NORVASC [Concomitant]
     Active Substance: AMLODIPINE BESYLATE
  27. OXYCODONE AND ACETAMINOPHEN [Concomitant]
     Active Substance: ACETAMINOPHEN\OXYCODONE HYDROCHLORIDE

REACTIONS (1)
  - Drug dose omission [Unknown]
